FAERS Safety Report 14280215 (Version 2)
Quarter: 2017Q4

REPORT INFORMATION
  Report Type: Report from Study
  Country: TR (occurrence: TR)
  Receive Date: 20171213
  Receipt Date: 20171221
  Transmission Date: 20180321
  Serious: Yes (Hospitalization)
  Sender: FDA-Public Use
  Company Number: TR-SHIRE-TR201733069

PATIENT

DRUGS (2)
  1. HUMAN COAGULATION FACTOR VIII (RECOMBINANT) UNSPECIFIED [Suspect]
     Active Substance: ANTIHEMOPHILIC FACTOR, HUMAN RECOMBINANT
     Dosage: ON 07-DEC-2017, 500 IU, UNK
     Route: 042
  2. HUMAN COAGULATION FACTOR VIII (RECOMBINANT) UNSPECIFIED [Suspect]
     Active Substance: ANTIHEMOPHILIC FACTOR, HUMAN RECOMBINANT
     Indication: FACTOR VIII DEFICIENCY
     Dosage: UNK
     Route: 042

REACTIONS (4)
  - Vomiting [Recovered/Resolved]
  - Cough [Recovered/Resolved]
  - Abdominal pain [Recovered/Resolved]
  - Hypersensitivity [Recovered/Resolved]

NARRATIVE: CASE EVENT DATE: 20171130
